FAERS Safety Report 8057431-0 (Version None)
Quarter: 2012Q1

REPORT INFORMATION
  Report Type: 
  Country: None (occurrence: None)
  Receive Date: 20120119
  Receipt Date: 20120117
  Transmission Date: 20120608
  Serious: Yes (Life-Threatening, Hospitalization)
  Sender: FDA-Public Use
  Company Number: GB-ROCHE-1001088

PATIENT
  Sex: Female
  Weight: 74 kg

DRUGS (9)
  1. COPEGUS [Suspect]
     Indication: HEPATITIS C
     Route: 048
     Dates: start: 20110418
  2. E45 (UNITED KINGDOM) [Concomitant]
     Route: 061
     Dates: start: 20110419
  3. ACETAMINOPHEN [Concomitant]
     Dosage: AS NECESSARY
     Route: 048
     Dates: start: 20110418
  4. PEGINTERFERON ALFA-2A [Suspect]
     Indication: HEPATITIS C
     Route: 058
     Dates: start: 20110418
  5. VASELINE [Concomitant]
     Dosage: AS NECESSARY
     Route: 061
     Dates: start: 20110502
  6. CHLORPHENIRAMINE MALEATE [Concomitant]
     Indication: PRURITUS
     Route: 048
     Dates: start: 20110711
  7. TELAPREVIR [Suspect]
     Indication: HEPATITIS C
     Route: 048
     Dates: start: 20110418, end: 20110711
  8. FLUOXETINE [Concomitant]
     Indication: DEPRESSION
  9. ALBUTEROL SULFATE AUTOHALER [Concomitant]
     Indication: ASTHMA

REACTIONS (1)
  - SUBARACHNOID HAEMORRHAGE [None]
